FAERS Safety Report 4824184-6 (Version None)
Quarter: 2005Q4

REPORT INFORMATION
  Report Type: 
  Country: None (occurrence: None)
  Receive Date: 20051108
  Receipt Date: 20051026
  Transmission Date: 20060501
  Serious: No
  Sender: FDA-Public Use
  Company Number: B0345211A

PATIENT
  Age: 54 Year
  Sex: Male

DRUGS (3)
  1. RETROVIR [Suspect]
     Indication: HIV INFECTION
     Dates: start: 20020601
  2. EPIVIR [Suspect]
     Indication: HIV INFECTION
     Dates: start: 20020601
  3. ZIAGEN [Suspect]
     Indication: HIV INFECTION
     Dates: start: 20020601

REACTIONS (4)
  - DRUG TOLERANCE DECREASED [None]
  - IMMUNE RECONSTITUTION SYNDROME [None]
  - TUBERCULOID LEPROSY [None]
  - VASCULITIS [None]
